FAERS Safety Report 4435242-2 (Version None)
Quarter: 2004Q3

REPORT INFORMATION
  Report Type: 
  Country: None (occurrence: None)
  Receive Date: 20040827
  Receipt Date: 20040818
  Transmission Date: 20050211
  Serious: Yes (Other)
  Sender: FDA-Public Use
  Company Number: GB-GLAXOSMITHKLINE-B0342907A

PATIENT
  Sex: Female

DRUGS (1)
  1. AUGMENTIN '125' [Suspect]
     Route: 048

REACTIONS (3)
  - BETA HAEMOLYTIC STREPTOCOCCAL INFECTION [None]
  - DRUG INEFFECTIVE [None]
  - GENITAL INFECTION FEMALE [None]
